FAERS Safety Report 21905834 (Version 1)
Quarter: 2023Q1

REPORT INFORMATION
  Report Type: Spontaneous
  Country: US (occurrence: None)
  Receive Date: 20230124
  Receipt Date: 20230124
  Transmission Date: 20230417
  Serious: Yes (Hospitalization)
  Sender: FDA-Public Use
  Company Number: US-FARMAPROD-202212-2788

PATIENT
  Age: 82 Year
  Sex: Male

DRUGS (6)
  1. OXERVATE [Suspect]
     Active Substance: CENEGERMIN-BKBJ
     Indication: Neurotrophic keratopathy
     Route: 047
     Dates: start: 20221220
  2. REFRESH TEARS [Concomitant]
     Active Substance: CARBOXYMETHYLCELLULOSE SODIUM
  3. MINERALS\VITAMINS [Concomitant]
     Active Substance: MINERALS\VITAMINS
  4. VALSARTAN [Concomitant]
     Active Substance: VALSARTAN
  5. ELIQUIS [Concomitant]
     Active Substance: APIXABAN
  6. FLAREX [Concomitant]
     Active Substance: FLUOROMETHOLONE ACETATE

REACTIONS (5)
  - Gastrointestinal haemorrhage [Unknown]
  - Wrong technique in product usage process [Unknown]
  - Eye irritation [Unknown]
  - Eye pain [Unknown]
  - Ocular discomfort [Unknown]

NARRATIVE: CASE EVENT DATE: 20230109
